FAERS Safety Report 14723990 (Version 1)
Quarter: 2018Q2

REPORT INFORMATION
  Report Type: Spontaneous
  Country: US (occurrence: US)
  Receive Date: 20180405
  Receipt Date: 20180405
  Transmission Date: 20180711
  Serious: No
  Sender: FDA-Public Use
  Company Number: US-LANNETT COMPANY, INC.-US-2018LAN000507

PATIENT
  Sex: Female
  Weight: 90.72 kg

DRUGS (1)
  1. DICYCLOMINE HYDROCHLORIDE (20MG) [Suspect]
     Active Substance: DICYCLOMINE HYDROCHLORIDE
     Indication: PRODUCT USED FOR UNKNOWN INDICATION
     Dosage: 20 MG, AS NEEDED

REACTIONS (1)
  - Euphoric mood [Unknown]
